FAERS Safety Report 13496522 (Version 2)
Quarter: 2017Q2

REPORT INFORMATION
  Report Type: Spontaneous
  Country: US (occurrence: US)
  Receive Date: 20170428
  Receipt Date: 20170428
  Transmission Date: 20170830
  Serious: No
  Sender: FDA-Public Use
  Company Number: US-JAZZ-2017-US-003017

PATIENT
  Sex: Male

DRUGS (30)
  1. CARVEDILOL. [Concomitant]
     Active Substance: CARVEDILOL
  2. NASONEX [Concomitant]
     Active Substance: MOMETASONE FUROATE
  3. OXYCODONE HYDROCHLORIDE. [Concomitant]
     Active Substance: OXYCODONE HYDROCHLORIDE
  4. OXYMORPHONE HCL [Concomitant]
     Active Substance: OXYMORPHONE HYDROCHLORIDE
  5. XYREM [Suspect]
     Active Substance: SODIUM OXYBATE
     Dosage: 4.5 G, BID
     Route: 048
     Dates: start: 2012
  6. POTASSIUM CL [Concomitant]
     Active Substance: POTASSIUM CHLORIDE
  7. BUPROPION HCL [Concomitant]
     Active Substance: BUPROPION HYDROCHLORIDE
  8. OPANA [Concomitant]
     Active Substance: OXYMORPHONE HYDROCHLORIDE
  9. ORTHOVISC [Concomitant]
     Active Substance: HYALURONIC ACID
  10. SPIRIVA [Concomitant]
     Active Substance: TIOTROPIUM BROMIDE MONOHYDRATE
  11. BABY ASPIRIN [Concomitant]
     Active Substance: ASPIRIN
  12. XYREM [Suspect]
     Active Substance: SODIUM OXYBATE
     Dosage: DOSE ADJUSTMENT
     Route: 048
     Dates: start: 2012, end: 2012
  13. AMLODIPINE BESYLATE. [Concomitant]
     Active Substance: AMLODIPINE BESYLATE
  14. BACLOFEN. [Concomitant]
     Active Substance: BACLOFEN
  15. DOXYCYCLINE. [Concomitant]
     Active Substance: DOXYCYCLINE
  16. OMEPRAZOLE. [Concomitant]
     Active Substance: OMEPRAZOLE
  17. SYMBICORT [Concomitant]
     Active Substance: BUDESONIDE\FORMOTEROL FUMARATE DIHYDRATE
  18. VENTOLIN HFA [Concomitant]
     Active Substance: ALBUTEROL SULFATE
  19. FOLIC ACID. [Concomitant]
     Active Substance: FOLIC ACID
  20. CORTISONE ACETATE. [Concomitant]
     Active Substance: CORTISONE ACETATE
  21. LOSARTAN POTASSIUM. [Concomitant]
     Active Substance: LOSARTAN POTASSIUM
  22. LISINOPRIL. [Concomitant]
     Active Substance: LISINOPRIL
  23. ADVAIR HFA [Concomitant]
     Active Substance: FLUTICASONE PROPIONATE\SALMETEROL XINAFOATE
  24. CLONIDINE HCL [Concomitant]
     Active Substance: CLONIDINE HYDROCHLORIDE
  25. XYREM [Suspect]
     Active Substance: SODIUM OXYBATE
     Indication: NARCOLEPSY
     Dosage: 2.25 G, BID
     Route: 048
     Dates: start: 201201, end: 2012
  26. FUROSEMIDE. [Concomitant]
     Active Substance: FUROSEMIDE
  27. AMITRIPTYLINE HCL [Concomitant]
     Active Substance: AMITRIPTYLINE
  28. CHLORTHALIDONE. [Concomitant]
     Active Substance: CHLORTHALIDONE
  29. HYDRALAZINE [Concomitant]
     Active Substance: HYDRALAZINE HYDROCHLORIDE
  30. NAPROXEN. [Concomitant]
     Active Substance: NAPROXEN

REACTIONS (1)
  - Tooth extraction [Unknown]
